FAERS Safety Report 5930773-8 (Version None)
Quarter: 2008Q4

REPORT INFORMATION
  Report Type: 
  Country: None (occurrence: None)
  Receive Date: 20081027
  Receipt Date: 20081017
  Transmission Date: 20090506
  Serious: Yes (Other)
  Sender: FDA-Public Use
  Company Number: US-JNJFOC-20081004709

PATIENT
  Age: 63 Year
  Sex: Female
  Weight: 58.06 kg

DRUGS (7)
  1. MONISTAT-3 COMBINATION PACK [Suspect]
     Route: 067
  2. MONISTAT-3 COMBINATION PACK [Suspect]
     Indication: FUNGAL INFECTION
     Route: 067
  3. MONISTAT-3 COMBINATION PACK [Suspect]
     Route: 061
  4. MONISTAT-3 COMBINATION PACK [Suspect]
     Route: 061
  5. DIFLUCAN [Concomitant]
  6. COUMADIN [Concomitant]
  7. TENORMIN [Concomitant]

REACTIONS (1)
  - ARRHYTHMIA [None]
